FAERS Safety Report 18111432 (Version 1)
Quarter: 2020Q3

REPORT INFORMATION
  Report Type: Report from Study
  Country: None (occurrence: US)
  Receive Date: 20200805
  Receipt Date: 20200805
  Transmission Date: 20201103
  Serious: Yes (Hospitalization)
  Sender: FDA-Public Use
  Company Number: US-ABBVIE-20K-163-3461849-00

PATIENT
  Age: 47 Year
  Sex: Female
  Weight: 95.79 kg

DRUGS (1)
  1. HUMIRA [Suspect]
     Active Substance: ADALIMUMAB
     Indication: ANKYLOSING SPONDYLITIS
     Dosage: CITRATE FREE
     Route: 058
     Dates: start: 202001, end: 202006

REACTIONS (11)
  - Headache [Recovering/Resolving]
  - Blood potassium decreased [Recovered/Resolved]
  - Muscle spasms [Recovering/Resolving]
  - Blood potassium decreased [Recovered/Resolved]
  - Clostridium difficile infection [Recovered/Resolved]
  - Pneumonia [Recovered/Resolved]
  - Respiratory syncytial virus infection [Recovered/Resolved]
  - Palpitations [Recovering/Resolving]
  - Blood thyroid stimulating hormone abnormal [Unknown]
  - Weight decreased [Not Recovered/Not Resolved]
  - Insomnia [Recovering/Resolving]

NARRATIVE: CASE EVENT DATE: 2020
